FAERS Safety Report 12433215 (Version 1)
Quarter: 2016Q2

REPORT INFORMATION
  Report Type: Spontaneous
  Country: PT (occurrence: PT)
  Receive Date: 20160603
  Receipt Date: 20160603
  Transmission Date: 20160815
  Serious: Yes (Other)
  Sender: FDA-Public Use
  Company Number: PT-ELI_LILLY_AND_COMPANY-PT201605011390

PATIENT
  Age: 75 Year
  Sex: Male

DRUGS (4)
  1. RANITIDINE. [Concomitant]
     Active Substance: RANITIDINE
     Indication: PREMEDICATION
     Dosage: 50 MG, UNKNOWN
     Route: 042
     Dates: end: 20160503
  2. CLEMASTINE [Concomitant]
     Active Substance: CLEMASTINE
     Indication: PREMEDICATION
     Dosage: 2 MG, UNKNOWN
     Route: 042
     Dates: end: 20160503
  3. ERBITUX [Suspect]
     Active Substance: CETUXIMAB
     Indication: PRODUCT USED FOR UNKNOWN INDICATION
     Dosage: 680 MG, UNKNOWN
     Route: 042
  4. HIDROCORTISONA                     /00028601/ [Concomitant]
     Indication: PREMEDICATION
     Dosage: 100 MG, UNKNOWN
     Route: 042
     Dates: end: 20160503

REACTIONS (4)
  - Cough [Recovered/Resolved]
  - Erythema [Recovered/Resolved]
  - Chest pain [Recovered/Resolved]
  - Flushing [Recovered/Resolved]

NARRATIVE: CASE EVENT DATE: 20160503
